FAERS Safety Report 21582547 (Version 2)
Quarter: 2022Q4

REPORT INFORMATION
  Report Type: Spontaneous
  Country: US (occurrence: US)
  Receive Date: 20221111
  Receipt Date: 20221129
  Transmission Date: 20230113
  Serious: Yes (Other)
  Sender: FDA-Public Use
  Company Number: US-TEVA-2022-US-2823590

PATIENT
  Age: 30 Year
  Sex: Male

DRUGS (16)
  1. DISULFIRAM [Suspect]
     Active Substance: DISULFIRAM
     Indication: Lyme disease
     Dosage: THRICE A WEEK , 125 MG
     Route: 065
     Dates: start: 201911
  2. DISULFIRAM [Suspect]
     Active Substance: DISULFIRAM
     Dosage: 62.5 MG/WEEK
     Route: 065
     Dates: start: 202103
  3. DISULFIRAM [Suspect]
     Active Substance: DISULFIRAM
     Dosage: 62.5 MG/DAY
     Route: 065
     Dates: start: 2021
  4. DAPSONE [Suspect]
     Active Substance: DAPSONE
     Indication: Lyme disease
     Dosage: 50 MILLIGRAM DAILY;
     Route: 048
  5. VENLAFAXINE [Suspect]
     Active Substance: VENLAFAXINE HYDROCHLORIDE
     Indication: Anxiety
     Route: 065
  6. VENLAFAXINE [Suspect]
     Active Substance: VENLAFAXINE HYDROCHLORIDE
     Indication: Depression
  7. DOXYCYCLINE [Concomitant]
     Active Substance: DOXYCYCLINE
     Indication: Lyme disease
     Dosage: 300 MILLIGRAM DAILY;
     Route: 048
  8. RIFAMPIN [Concomitant]
     Active Substance: RIFAMPIN
     Indication: Lyme disease
     Dosage: 600 MILLIGRAM DAILY;
     Route: 048
  9. PYRAZINAMIDE [Concomitant]
     Active Substance: PYRAZINAMIDE
     Indication: Lyme disease
     Dosage: 2000 MILLIGRAM DAILY;
     Route: 065
  10. ZITHROMAX [Concomitant]
     Active Substance: AZITHROMYCIN DIHYDRATE
     Indication: Lyme disease
     Dosage: 500 MILLIGRAM DAILY;
     Route: 065
  11. METHYLENE BLUE [Concomitant]
     Active Substance: METHYLENE BLUE
     Indication: Lyme disease
     Dosage: 100 MILLIGRAM DAILY;
     Route: 048
  12. LIBRIUM [Concomitant]
     Active Substance: CHLORDIAZEPOXIDE HYDROCHLORIDE
     Indication: Anxiety
     Route: 065
  13. ABILIFY [Concomitant]
     Active Substance: ARIPIPRAZOLE
     Indication: Attention deficit hyperactivity disorder
     Route: 065
  14. CONCERTA [Concomitant]
     Active Substance: METHYLPHENIDATE HYDROCHLORIDE
     Indication: Attention deficit hyperactivity disorder
     Route: 065
  15. CLOMIPHENE [Concomitant]
     Active Substance: CLOMIPHENE
     Indication: Androgen deficiency
     Route: 065
  16. TESTOSTERONE [Concomitant]
     Active Substance: TESTOSTERONE
     Indication: Androgen deficiency
     Route: 065

REACTIONS (4)
  - Jarisch-Herxheimer reaction [Unknown]
  - Anaemia [Unknown]
  - Nausea [Unknown]
  - Drug ineffective [Unknown]

NARRATIVE: CASE EVENT DATE: 20191101
